FAERS Safety Report 25556999 (Version 1)
Quarter: 2025Q3

REPORT INFORMATION
  Report Type: Spontaneous
  Country: US (occurrence: US)
  Receive Date: 20250715
  Receipt Date: 20250715
  Transmission Date: 20251020
  Serious: No
  Sender: TAKEDA
  Company Number: US-TAKEDA-2025TUS063261

PATIENT
  Sex: Male
  Weight: 98 kg

DRUGS (3)
  1. DEXILANT [Suspect]
     Active Substance: DEXLANSOPRAZOLE
     Indication: Gastrooesophageal reflux disease
     Dosage: UNK, QD
  2. DEXILANT [Suspect]
     Active Substance: DEXLANSOPRAZOLE
     Indication: Gastrointestinal disorder
  3. LISINOPRIL [Concomitant]
     Active Substance: LISINOPRIL
     Indication: Hypertension

REACTIONS (2)
  - No adverse event [Unknown]
  - Product use issue [Unknown]
